FAERS Safety Report 4336541-5 (Version None)
Quarter: 2004Q2

REPORT INFORMATION
  Report Type: 
  Country: None (occurrence: None)
  Receive Date: 20040408
  Receipt Date: 20040408
  Transmission Date: 20050107
  Serious: Yes (Other)
  Sender: FDA-Public Use
  Company Number: None

PATIENT
  Age: 78 Year
  Sex: Male
  Weight: 63.5 kg

DRUGS (2)
  1. LISINOPRIL [Suspect]
     Indication: AGE INDETERMINATE MYOCARDIAL INFARCTION
     Dosage: 20 MG QD ORAL
     Route: 048
     Dates: start: 20031017, end: 20040315
  2. LISINOPRIL [Suspect]
     Indication: HYPERTENSION
     Dosage: 20 MG QD ORAL
     Route: 048
     Dates: start: 20031017, end: 20040315

REACTIONS (1)
  - ANGIONEUROTIC OEDEMA [None]
